FAERS Safety Report 8310600-4 (Version None)
Quarter: 2012Q2

REPORT INFORMATION
  Report Type: 
  Country: None (occurrence: None)
  Receive Date: 20120425
  Receipt Date: 20120425
  Transmission Date: 20120825
  Serious: Yes (Other)
  Sender: FDA-Public Use
  Company Number: None

PATIENT
  Age: 65 Year
  Sex: Female
  Weight: 65.77 kg

DRUGS (1)
  1. LEVOFLOXACIN [Suspect]

REACTIONS (10)
  - DIARRHOEA [None]
  - NAUSEA [None]
  - URTICARIA [None]
  - PRESYNCOPE [None]
  - SWELLING [None]
  - NO REACTION ON PREVIOUS EXPOSURE TO DRUG [None]
  - ERYTHEMA [None]
  - CONFUSIONAL STATE [None]
  - DIZZINESS [None]
  - PRURITUS [None]
